FAERS Safety Report 19871447 (Version 1)
Quarter: 2021Q3

REPORT INFORMATION
  Report Type: Spontaneous
  Country: US (occurrence: US)
  Receive Date: 20210922
  Receipt Date: 20210922
  Transmission Date: 20211014
  Serious: Yes (Other)
  Sender: FDA-Public Use
  Company Number: None

PATIENT
  Age: 47 Year
  Sex: Female
  Weight: 72 kg

DRUGS (21)
  1. SODIUM CHLORIDE. [Concomitant]
     Active Substance: SODIUM CHLORIDE
  2. TRIKAFTA [Suspect]
     Active Substance: ELEXACAFTOR\IVACAFTOR\TEZACAFTOR
     Indication: CYSTIC FIBROSIS
     Dosage: ?          QUANTITY:3 TABLET(S);?
     Route: 048
     Dates: start: 20200201, end: 20200209
  3. ADVAIR HFA INHALER [Concomitant]
  4. MULTIVITAMIN [Concomitant]
     Active Substance: VITAMINS
  5. VITAMIN C [Concomitant]
     Active Substance: ASCORBIC ACID
  6. VITAMIN D [Concomitant]
     Active Substance: VITAMIN D NOS
  7. PANTOPRAZOLE [Concomitant]
     Active Substance: PANTOPRAZOLE
  8. PROBIOTIC GUMMIES [Concomitant]
  9. DAIRY RELIEF [Concomitant]
  10. LACTASE ENZYME [Concomitant]
     Active Substance: LACTASE
  11. VITAMIN E [Concomitant]
     Active Substance: .ALPHA.-TOCOPHEROL
  12. ALBUTEROL. [Concomitant]
     Active Substance: ALBUTEROL
  13. AZITHROMYCIN ANHYDROUS. [Concomitant]
     Active Substance: AZITHROMYCIN ANHYDROUS
  14. CALCIUM [Concomitant]
     Active Substance: CALCIUM
  15. ALLEGRA [Concomitant]
     Active Substance: FEXOFENADINE HYDROCHLORIDE
  16. CAYSTON [Concomitant]
     Active Substance: AZTREONAM
  17. FLUTICASONE. [Concomitant]
     Active Substance: FLUTICASONE
  18. MEPHYTON [Concomitant]
     Active Substance: PHYTONADIONE
  19. MAGNESIUM [Concomitant]
     Active Substance: MAGNESIUM
  20. DORNASE ALFA. [Concomitant]
     Active Substance: DORNASE ALFA
  21. CREON [Concomitant]
     Active Substance: PANCRELIPASE AMYLASE\PANCRELIPASE LIPASE\PANCRELIPASE PROTEASE

REACTIONS (4)
  - Suicidal ideation [None]
  - Insomnia [None]
  - Abdominal pain upper [None]
  - Fatigue [None]

NARRATIVE: CASE EVENT DATE: 20200212
